FAERS Safety Report 9878780 (Version 2)
Quarter: 2014Q1

REPORT INFORMATION
  Report Type: Spontaneous
  Country: US (occurrence: US)
  Receive Date: 20140206
  Receipt Date: 20140228
  Transmission Date: 20141002
  Serious: Yes (Hospitalization)
  Sender: FDA-Public Use
  Company Number: US-GLAXOSMITHKLINE-A1059664A

PATIENT
  Age: 58 Year
  Sex: Male

DRUGS (2)
  1. ARIXTRA [Suspect]
     Indication: ILL-DEFINED DISORDER
     Dosage: 7.5MG UNKNOWN
     Route: 042
     Dates: start: 20131028
  2. VENTOLIN HFA [Concomitant]

REACTIONS (2)
  - Investigation [Unknown]
  - Chemotherapy [Unknown]
